FAERS Safety Report 8543561-3 (Version None)
Quarter: 2012Q3

REPORT INFORMATION
  Report Type: 
  Country: None (occurrence: None)
  Receive Date: 20120727
  Receipt Date: 20120716
  Transmission Date: 20120928
  Serious: Yes (Death, Hospitalization)
  Sender: FDA-Public Use
  Company Number: US-BAYER-2012-073060

PATIENT
  Age: 35 Year
  Sex: Female
  Weight: 93.878 kg

DRUGS (9)
  1. ZOLOFT [Concomitant]
     Dosage: DAILY
  2. YAZ [Suspect]
     Indication: ENDOMETRIOSIS
  3. RESPIRATORY SYSTEM [Concomitant]
  4. XANAX [Concomitant]
  5. PULMICORT [Concomitant]
     Dosage: DAILY
  6. TUSSIONEX [Concomitant]
  7. ANTIBIOTICS [Concomitant]
     Indication: BRONCHITIS
  8. YASMIN [Suspect]
  9. ZYRTEC [Concomitant]
     Dosage: DAILY

REACTIONS (1)
  - PULMONARY EMBOLISM [None]
